FAERS Safety Report 4345752-4 (Version None)
Quarter: 2004Q2

REPORT INFORMATION
  Report Type: 
  Country: None (occurrence: None)
  Receive Date: 20040421
  Receipt Date: 20040407
  Transmission Date: 20050107
  Serious: Yes (Death, Other)
  Sender: FDA-Public Use
  Company Number: NSADSS2003018723

PATIENT
  Age: 68 Year
  Sex: Female
  Weight: 70 kg

DRUGS (14)
  1. REMICADE [Suspect]
     Indication: RHEUMATOID ARTHRITIS
     Dosage: SEE IMAGE
     Route: 041
     Dates: start: 20030311, end: 20030311
  2. REMICADE [Suspect]
     Indication: RHEUMATOID ARTHRITIS
     Dosage: SEE IMAGE
     Route: 041
     Dates: start: 20030122
  3. ALPHAGAN [Concomitant]
  4. FOSAMAX [Concomitant]
  5. PREDNISONE [Concomitant]
  6. SYNTHROID [Concomitant]
  7. APO-FOLIC (FOLIC ACID) [Concomitant]
  8. TIAPROFENIC ACID (TIAPROFENIC ACID) [Concomitant]
  9. AVALIDE (KARVEA HCT) [Concomitant]
  10. LASIX [Concomitant]
  11. METHOTREXATE [Concomitant]
  12. PREMARIN (ESROGENS CONJUGATED) [Concomitant]
  13. LOSEC (OMPEPRAZOLE) [Concomitant]
  14. COVERSYL (PERINDOPRIL) [Concomitant]

REACTIONS (6)
  - ASCITES [None]
  - BACK PAIN [None]
  - DYSPNOEA EXERTIONAL [None]
  - OVARIAN EPITHELIAL CANCER STAGE IV [None]
  - PELVIC MASS [None]
  - PLEURAL EFFUSION [None]
